FAERS Safety Report 6961462-9 (Version None)
Quarter: 2010Q3

REPORT INFORMATION
  Report Type: 
  Country: None (occurrence: None)
  Receive Date: 20100901
  Receipt Date: 20100826
  Transmission Date: 20110219
  Serious: Yes (Other)
  Sender: FDA-Public Use
  Company Number: PHHY2010DE57374

PATIENT
  Sex: Female

DRUGS (1)
  1. ESTRAGEST TTS [Suspect]
     Dosage: EVERY 4 DAYS
     Route: 062

REACTIONS (3)
  - ASTHMA [None]
  - COUGH [None]
  - LUNG DISORDER [None]
